FAERS Safety Report 8426450-4 (Version None)
Quarter: 2012Q2

REPORT INFORMATION
  Report Type: 
  Country: None (occurrence: None)
  Receive Date: 20120611
  Receipt Date: 20120605
  Transmission Date: 20120825
  Serious: Yes (Other)
  Sender: FDA-Public Use
  Company Number: US-PFIZER INC-2012135845

PATIENT
  Sex: Female

DRUGS (5)
  1. NEURONTIN [Suspect]
     Dosage: UNK
  2. PROCARDIA [Suspect]
     Dosage: UNK
  3. ALDACTONE [Suspect]
     Dosage: UNK
  4. ZOLOFT [Suspect]
     Dosage: UNK
  5. GLUCOTROL [Suspect]
     Dosage: UNK

REACTIONS (1)
  - CARDIAC DISORDER [None]
